FAERS Safety Report 8447376-6 (Version None)
Quarter: 2012Q2

REPORT INFORMATION
  Report Type: 
  Country: None (occurrence: None)
  Receive Date: 20120619
  Receipt Date: 20120617
  Transmission Date: 20120825
  Serious: Yes (Death, Disabling, Other)
  Sender: FDA-Public Use
  Company Number: PHHY2012FR051004

PATIENT
  Sex: Female
  Weight: 59 kg

DRUGS (4)
  1. MEMANTINE HYDROCHLORIDE [Concomitant]
     Indication: DEMENTIA
     Dosage: 20 MG PER DAY
  2. ZOLEDRONOC ACID [Suspect]
     Indication: OSTEOPOROSIS
     Dosage: 5 MG, UNK
     Route: 042
     Dates: start: 20120607
  3. KEPPRA [Concomitant]
     Indication: EPILEPSY
     Dosage: 2 DF PER DAY
  4. VALSARTAN  AND HYDROCHLOROTHIAZIDE [Concomitant]
     Indication: HYPERTENSION
     Dosage: 80/12.5 MG QD

REACTIONS (11)
  - MYALGIA [None]
  - DYSPNOEA [None]
  - PYREXIA [None]
  - DIARRHOEA [None]
  - VOMITING [None]
  - CARDIAC ARREST [None]
  - INFLUENZA [None]
  - VIRAL INFECTION [None]
  - CHEST PAIN [None]
  - BACK PAIN [None]
  - LOSS OF CONSCIOUSNESS [None]
